FAERS Safety Report 5963735-5 (Version None)
Quarter: 2008Q4

REPORT INFORMATION
  Report Type: 
  Country: None (occurrence: None)
  Receive Date: 20081121
  Receipt Date: 20081121
  Transmission Date: 20090506
  Serious: Yes (Hospitalization)
  Sender: FDA-Public Use
  Company Number: None

PATIENT
  Sex: Male
  Weight: 56.246 kg

DRUGS (22)
  1. DAPTOMYCIN 500MG SINGLE DOSE VIAL CUBIST PHARMACEUTICALS [Suspect]
     Indication: OSTEOMYELITIS
     Dosage: 600 MG EVERY 24 HOURS IV DRIP
     Route: 041
     Dates: start: 20081110, end: 20081114
  2. DEXTROSE [Concomitant]
  3. LACTATED RINGER'S [Concomitant]
  4. ACETAMINOPHEN [Concomitant]
  5. INSULIN GLARGINE [Concomitant]
  6. INSULIN LISPRO [Concomitant]
  7. CLONIDINE [Concomitant]
  8. DOXEPIN HCL [Concomitant]
  9. FENTANYL [Concomitant]
  10. MORPHINE [Concomitant]
  11. METOCLOPRAMIDE [Concomitant]
  12. MIDAZOLAM HCL [Concomitant]
  13. SIMVASTATIN [Concomitant]
  14. PROMETHAZINE [Concomitant]
  15. ONDANSETRON [Concomitant]
  16. MEPERIDINE HCL [Concomitant]
  17. LISINOPRIL [Concomitant]
  18. KETOROLAC TROMETHAMINE [Concomitant]
  19. FUROSEMIDE [Concomitant]
  20. GLUCOSE [Concomitant]
  21. VICODIN [Concomitant]
  22. IBUPROFEN TABLETS [Concomitant]

REACTIONS (1)
  - BLOOD CREATINE PHOSPHOKINASE INCREASED [None]
